FAERS Safety Report 24714190 (Version 1)
Quarter: 2024Q4

REPORT INFORMATION
  Report Type: Spontaneous
  Country: US (occurrence: US)
  Receive Date: 20241209
  Receipt Date: 20241209
  Transmission Date: 20250115
  Serious: No
  Sender: REGENERON
  Company Number: US-REGENERON PHARMACEUTICALS, INC.-2024-162223

PATIENT
  Sex: Female

DRUGS (3)
  1. EYLEA [Suspect]
     Active Substance: AFLIBERCEPT
     Indication: Product used for unknown indication
     Dosage: 2 MG, Q4 WEEKS, OS (LEFT EYE); FORMULATION: 2 MG (UNKNOWN)
     Dates: start: 20200131, end: 2020
  2. EYLEA [Suspect]
     Active Substance: AFLIBERCEPT
     Dosage: 2 MG; EVERY 4-6 WEEKS; FORMULATION: 2 MG (UNKNOWN)
     Dates: start: 20210903, end: 2022
  3. BEOVU [Concomitant]
     Active Substance: BROLUCIZUMAB-DBLL
     Indication: Product used for unknown indication
     Dosage: UNK, EVERY 4-6 WEEKS
     Dates: start: 20200612

REACTIONS (1)
  - Eye discharge [Unknown]

NARRATIVE: CASE EVENT DATE: 20200101
